FAERS Safety Report 23653136 (Version 3)
Quarter: 2024Q2

REPORT INFORMATION
  Report Type: Spontaneous
  Country: US (occurrence: None)
  Receive Date: 20240320
  Receipt Date: 20240416
  Transmission Date: 20240716
  Serious: Yes (Other)
  Sender: FDA-Public Use
  Company Number: US-ROCHE-3524883

PATIENT
  Age: 14 Year
  Sex: Female

DRUGS (3)
  1. ACTEMRA [Suspect]
     Active Substance: TOCILIZUMAB
     Indication: Juvenile idiopathic arthritis
     Dosage: STRENGTH:162MG/0.9M
     Route: 058
     Dates: start: 202402
  2. ACTEMRA [Suspect]
     Active Substance: TOCILIZUMAB
  3. METHOTREXATE [Concomitant]
     Active Substance: METHOTREXATE

REACTIONS (5)
  - Product quality issue [Unknown]
  - Device breakage [Unknown]
  - Wrong technique in product usage process [Unknown]
  - No adverse event [Unknown]
  - Device defective [Unknown]

NARRATIVE: CASE EVENT DATE: 20240310
